FAERS Safety Report 6023480-7 (Version None)
Quarter: 2008Q4

REPORT INFORMATION
  Report Type: 
  Country: None (occurrence: None)
  Receive Date: 20081222
  Receipt Date: 20080902
  Transmission Date: 20090506
  Serious: No
  Sender: FDA-Public Use
  Company Number: SPV1-2008-01894

PATIENT
  Sex: Male

DRUGS (1)
  1. VYVANSE [Suspect]
     Dosage: 50 MG, 1X/DAY:QD

REACTIONS (6)
  - CRYING [None]
  - DRUG EFFECT INCREASED [None]
  - FATIGUE [None]
  - MALAISE [None]
  - PERSONALITY CHANGE [None]
  - URINARY TRACT INFECTION [None]
